FAERS Safety Report 11822647 (Version 1)
Quarter: 2015Q4

REPORT INFORMATION
  Report Type: Spontaneous
  Country: PR (occurrence: US)
  Receive Date: 20151210
  Receipt Date: 20151210
  Transmission Date: 20160305
  Serious: Yes (Hospitalization)
  Sender: FDA-Public Use
  Company Number: PR-JNJFOC-20150614481

PATIENT
  Age: 81 Year
  Sex: Male

DRUGS (2)
  1. IMBRUVICA [Suspect]
     Active Substance: IBRUTINIB
     Indication: CHRONIC LYMPHOCYTIC LEUKAEMIA
     Dosage: START DATE NOT REPORTED, THERAPY WAS DISCONTINUED ON 6- JUN-2015.
     Route: 048
  2. IMBRUVICA [Suspect]
     Active Substance: IBRUTINIB
     Indication: CHRONIC LYMPHOCYTIC LEUKAEMIA
     Dosage: INAPPROPRIATE DOSE 420MG THREE TIMES A DAY FROM 14-MAY- TO 27-MAY-2015, ALSO START OF 15-MAY - 2015
     Route: 048
     Dates: start: 20150514, end: 20150608

REACTIONS (3)
  - Inappropriate schedule of drug administration [Recovered/Resolved]
  - Muscle spasms [Not Recovered/Not Resolved]
  - Musculoskeletal pain [Recovering/Resolving]

NARRATIVE: CASE EVENT DATE: 20150515
